FAERS Safety Report 4709474-X (Version None)
Quarter: 2005Q3

REPORT INFORMATION
  Report Type: 
  Country: None (occurrence: None)
  Receive Date: 20050708
  Receipt Date: 20050524
  Transmission Date: 20060218
  Serious: Yes (Hospitalization)
  Sender: FDA-Public Use
  Company Number: PHEH2005US05883

PATIENT
  Age: 67 Year
  Sex: Female

DRUGS (1)
  1. ELIDEL [Suspect]
     Dosage: UNK, BID
     Route: 061
     Dates: start: 20030101

REACTIONS (10)
  - ARRHYTHMIA [None]
  - CHEILITIS [None]
  - DIARRHOEA [None]
  - IMPAIRED HEALING [None]
  - LIP HAEMORRHAGE [None]
  - LIP PAIN [None]
  - LYMPHADENOPATHY [None]
  - RASH MACULAR [None]
  - SCAB [None]
  - SKIN NODULE [None]
